FAERS Safety Report 23170693 (Version 1)
Quarter: 2023Q4

REPORT INFORMATION
  Report Type: Spontaneous
  Country: FR (occurrence: FR)
  Receive Date: 20231110
  Receipt Date: 20231110
  Transmission Date: 20240109
  Serious: Yes (Other)
  Sender: FDA-Public Use
  Company Number: FR-DENTSPLY-2023SCDP000378

PATIENT
  Age: 71 Year
  Sex: Male

DRUGS (1)
  1. MEPIVACAINE HYDROCHLORIDE [Suspect]
     Active Substance: MEPIVACAINE HYDROCHLORIDE
     Indication: Nerve block
     Dosage: UNK DOSE OF CARBOCAINE SOLUTION FOR INJECTION
     Route: 053
     Dates: start: 20230922, end: 20230922

REACTIONS (2)
  - Paraesthesia [Recovered/Resolved]
  - Drug ineffective [Recovered/Resolved]

NARRATIVE: CASE EVENT DATE: 20230922
